FAERS Safety Report 7818141-5 (Version None)
Quarter: 2011Q4

REPORT INFORMATION
  Report Type: 
  Country: None (occurrence: None)
  Receive Date: 20111017
  Receipt Date: 20111015
  Transmission Date: 20120403
  Serious: No
  Sender: FDA-Public Use
  Company Number: US-TEVA-305308USA

PATIENT
  Sex: Female
  Weight: 83.99 kg

DRUGS (2)
  1. NAPROXEN [Concomitant]
     Indication: INTERVERTEBRAL DISC PROTRUSION
  2. PLAN B ONE-STEP [Suspect]
     Indication: POST COITAL CONTRACEPTION
     Dosage: 1.5 MILLIGRAM;
     Route: 048
     Dates: start: 20110927, end: 20110927

REACTIONS (2)
  - OFF LABEL USE [None]
  - PREGNANCY AFTER POST COITAL CONTRACEPTION [None]
